FAERS Safety Report 12635902 (Version 1)
Quarter: 2016Q3

REPORT INFORMATION
  Report Type: Report from Study
  Country: US (occurrence: US)
  Receive Date: 20160809
  Receipt Date: 20160809
  Transmission Date: 20161109
  Serious: Yes (Hospitalization)
  Sender: FDA-Public Use
  Company Number: US-ACTELION-A-NJ2015-114232

PATIENT
  Age: 60 Year
  Sex: Female

DRUGS (4)
  1. COUMADIN [Concomitant]
     Active Substance: WARFARIN SODIUM
  2. SILDENAFIL. [Concomitant]
     Active Substance: SILDENAFIL
  3. DILTIAZEM. [Concomitant]
     Active Substance: DILTIAZEM
  4. TRACLEER [Suspect]
     Active Substance: BOSENTAN
     Indication: PULMONARY ARTERIAL HYPERTENSION
     Dosage: 125 MG, BID
     Route: 048
     Dates: start: 20120807

REACTIONS (10)
  - Fall [Unknown]
  - Muscular weakness [Unknown]
  - Vitamin D decreased [Unknown]
  - Chills [Unknown]
  - Dizziness [Unknown]
  - Sneezing [Unknown]
  - Diplopia [Unknown]
  - Vertigo [Unknown]
  - Arthralgia [Unknown]
  - Visual impairment [Unknown]
